FAERS Safety Report 25862774 (Version 3)
Quarter: 2025Q4

REPORT INFORMATION
  Report Type: Spontaneous
  Country: EU (occurrence: EU)
  Receive Date: 20250930
  Receipt Date: 20251115
  Transmission Date: 20260118
  Serious: Yes (Other)
  Sender: AUROBINDO
  Company Number: EU-002147023-NVSC2025DE144004

PATIENT
  Sex: Female
  Weight: 65 kg

DRUGS (2)
  1. LETROZOLE [Suspect]
     Active Substance: LETROZOLE
     Indication: Hormone receptor positive HER2 negative breast cancer
     Dosage: 2.5 MILLIGRAM, ONCE A DAY (2.5 MG, QD (TOTAL DAILY DOSE)
     Route: 048
     Dates: start: 20250603
  2. KISQALI [Suspect]
     Active Substance: RIBOCICLIB SUCCINATE
     Indication: Hormone receptor positive HER2 negative breast cancer
     Dosage: 400 MILLIGRAM, ONCE A DAY (400 MG, QD (TOTAL DAILY DOSE) (21 DAYS DAILY INTAKE, 7 DAYS PAUSE)
     Route: 048
     Dates: start: 20250603, end: 20250910

REACTIONS (3)
  - Alanine aminotransferase increased [Unknown]
  - Aspartate aminotransferase increased [Unknown]
  - Transaminases increased [Recovering/Resolving]

NARRATIVE: CASE EVENT DATE: 20250828
